FAERS Safety Report 18868425 (Version 1)
Quarter: 2021Q1

REPORT INFORMATION
  Report Type: Spontaneous
  Country: US (occurrence: US)
  Receive Date: 20210209
  Receipt Date: 20210209
  Transmission Date: 20210420
  Serious: No
  Sender: FDA-Public Use
  Company Number: US-MYLANLABS-2021M1003319

PATIENT
  Age: 90 Year
  Sex: Female
  Weight: 78 kg

DRUGS (1)
  1. TRAVOPROST OPHTHALMIC SOLUTION USP [Suspect]
     Active Substance: TRAVOPROST
     Indication: GLAUCOMA
     Dosage: UNK
     Route: 047

REACTIONS (1)
  - Circumstance or information capable of leading to medication error [Recovered/Resolved]

NARRATIVE: CASE EVENT DATE: 20210116
